FAERS Safety Report 25873048 (Version 1)
Quarter: 2025Q4

REPORT INFORMATION
  Report Type: Spontaneous
  Country: US (occurrence: None)
  Receive Date: 20251001
  Receipt Date: 20251001
  Transmission Date: 20260117
  Serious: Yes (Hospitalization)
  Sender: FDA-CTU
  Company Number: None

PATIENT
  Age: 32 Year
  Sex: Male
  Weight: 60.3 kg

DRUGS (1)
  1. YESINTEK [Suspect]
     Active Substance: USTEKINUMAB-KFCE
     Indication: Crohn^s disease
     Dosage: OTHER FREQUENCY : EVEVY 28 DAYS;?
     Route: 058
     Dates: start: 20250625

REACTIONS (5)
  - Abdominal distension [None]
  - Abdominal pain [None]
  - Obstruction [None]
  - Vascular device infection [None]
  - Thrombosis [None]

NARRATIVE: CASE EVENT DATE: 20250801
